FAERS Safety Report 7769812-0 (Version None)
Quarter: 2011Q3

REPORT INFORMATION
  Report Type: 
  Country: None (occurrence: None)
  Receive Date: 20110922
  Receipt Date: 20110506
  Transmission Date: 20111222
  Serious: No
  Sender: FDA-Public Use
  Company Number: US-ASTRAZENECA-2010SE45094

PATIENT
  Age: 63 Year
  Sex: Female
  Weight: 88.5 kg

DRUGS (8)
  1. SEROQUEL [Suspect]
     Indication: BIPOLAR II DISORDER
     Route: 048
     Dates: start: 20070501, end: 20091101
  2. SEROQUEL [Suspect]
     Route: 048
     Dates: start: 20091101, end: 20100501
  3. SINEMET [Concomitant]
  4. SEROQUEL [Suspect]
     Route: 048
     Dates: start: 20100901, end: 20101001
  5. ASPIRIN [Concomitant]
  6. SOLOTOL [Concomitant]
  7. SEROQUEL [Suspect]
     Route: 048
     Dates: start: 20100501, end: 20100901
  8. HYDROCHLOROTHIAZIDE [Concomitant]

REACTIONS (5)
  - ROTATOR CUFF SYNDROME [None]
  - MUSCLE TIGHTNESS [None]
  - PAIN IN EXTREMITY [None]
  - MUSCULOSKELETAL STIFFNESS [None]
  - MUSCLE SPASMS [None]
